FAERS Safety Report 6669996-1 (Version None)
Quarter: 2010Q2

REPORT INFORMATION
  Report Type: 
  Country: None (occurrence: None)
  Receive Date: 20100406
  Receipt Date: 20100129
  Transmission Date: 20101027
  Serious: No
  Sender: FDA-Public Use
  Company Number: US-ALLERGAN-1001167US

PATIENT
  Age: 42 Year
  Sex: Female

DRUGS (1)
  1. LATISSE [Suspect]
     Indication: GROWTH OF EYELASHES
     Dosage: 1 GTT, QHS
     Route: 061
     Dates: start: 20091201

REACTIONS (7)
  - ERYTHEMA [None]
  - EYE PRURITUS [None]
  - EYELIDS PRURITUS [None]
  - OCULAR HYPERAEMIA [None]
  - SCAB [None]
  - SKIN BURNING SENSATION [None]
  - SKIN DISCOLOURATION [None]
